FAERS Safety Report 21398489 (Version 1)
Quarter: 2022Q3

REPORT INFORMATION
  Report Type: Spontaneous
  Country: RU (occurrence: RU)
  Receive Date: 20220930
  Receipt Date: 20220930
  Transmission Date: 20221027
  Serious: Yes (Other)
  Sender: FDA-Public Use
  Company Number: RU-BIOMARINAP-RU-2022-145719

PATIENT

DRUGS (1)
  1. BRINEURA [Suspect]
     Active Substance: CERLIPONASE ALFA
     Indication: Neuronal ceroid lipofuscinosis
     Dosage: UNK
     Route: 020

REACTIONS (1)
  - CSF white blood cell count positive [Unknown]
